FAERS Safety Report 8177962-2 (Version None)
Quarter: 2012Q1

REPORT INFORMATION
  Report Type: 
  Country: None (occurrence: None)
  Receive Date: 20120301
  Receipt Date: 20120220
  Transmission Date: 20120608
  Serious: Yes (Other)
  Sender: FDA-Public Use
  Company Number: CZ-PFIZER INC-2012007952

PATIENT
  Age: 49 Year
  Sex: Female

DRUGS (8)
  1. DOXORUBICIN HCL [Suspect]
     Indication: BREAST CANCER
     Dosage: 50 MG/M2, EVERY 3 WEEKS
  2. CARBOPLATIN [Suspect]
     Indication: BREAST CANCER
     Dosage: 40 MG/M2, UNK
     Dates: end: 20060201
  3. CISPLATIN [Suspect]
     Indication: BREAST CANCER
     Dosage: 40 MG/M2, EVERY 2 WEEKS
     Dates: start: 20061101
  4. PACLITAXEL [Suspect]
     Indication: BREAST CANCER
     Dosage: 175 MG/M2, EVERY 3 WEEKS
     Dates: end: 20060201
  5. GEMCITABINE [Suspect]
     Indication: BREAST CANCER
     Dosage: 1 G/M2, EVERY TWO WEEKS
     Dates: start: 20061101
  6. TAMOXIFEN [Concomitant]
     Indication: OVARIAN EPITHELIAL CANCER
  7. PACLITAXEL [Suspect]
     Dosage: 175 MG/M2
     Route: 065
     Dates: end: 20060201
  8. TAMOXIFEN [Concomitant]
     Indication: BREAST CANCER
     Dosage: UNK
     Route: 065

REACTIONS (2)
  - NEOPLASM MALIGNANT [None]
  - MYELODYSPLASTIC SYNDROME [None]
